FAERS Safety Report 6567016-0 (Version None)
Quarter: 2010Q1

REPORT INFORMATION
  Report Type: 
  Country: None (occurrence: None)
  Receive Date: 20100127
  Receipt Date: 20100118
  Transmission Date: 20100710
  Serious: Yes (Hospitalization, Other)
  Sender: FDA-Public Use
  Company Number: 003528

PATIENT
  Sex: Female
  Weight: 29 kg

DRUGS (3)
  1. XUSAL (XUSAL) [Suspect]
     Indication: URTICARIA CHRONIC
     Dosage: (10 MG TID ORAL)
     Route: 048
     Dates: start: 20090401
  2. REGULAR INSULIN [Concomitant]
  3. NPH INSULIN [Concomitant]

REACTIONS (3)
  - EPILEPSY [None]
  - HYPOGLYCAEMIA [None]
  - LOSS OF CONSCIOUSNESS [None]
